FAERS Safety Report 20497268 (Version 1)
Quarter: 2022Q1

REPORT INFORMATION
  Report Type: Spontaneous
  Country: US (occurrence: US)
  Receive Date: 20220221
  Receipt Date: 20220221
  Transmission Date: 20220424
  Serious: Yes (Hospitalization)
  Sender: FDA-Public Use
  Company Number: US-BioHaven Pharmaceuticals-2022BHV000518

PATIENT
  Age: 49 Year
  Sex: Female

DRUGS (5)
  1. NURTEC ODT [Suspect]
     Active Substance: RIMEGEPANT SULFATE
     Indication: Migraine
     Dosage: PATIENT HAS BEEN TAKING NURTEC FOR 2 YEARS; PATIENT WAS FIRST DISPENSED THE PRODUCT ON 03-AUG-2021 A
  2. NURTEC ODT [Suspect]
     Active Substance: RIMEGEPANT SULFATE
     Indication: Headache
  3. XARELTO [Concomitant]
     Active Substance: RIVAROXABAN
     Indication: Thrombosis
     Route: 065
  4. PROCHLORPERAZINE [Concomitant]
     Active Substance: PROCHLORPERAZINE
     Indication: Vomiting
     Route: 065
  5. AUBAGIO [Concomitant]
     Active Substance: TERIFLUNOMIDE
     Indication: Multiple sclerosis
     Route: 065

REACTIONS (6)
  - Drug ineffective [Unknown]
  - Headache [Recovered/Resolved]
  - Drug interaction [Unknown]
  - Peripheral swelling [Unknown]
  - Drug hypersensitivity [Unknown]
  - Emotional disorder [Unknown]
